FAERS Safety Report 15255313 (Version 1)
Quarter: 2018Q3

REPORT INFORMATION
  Report Type: Spontaneous
  Country: FR (occurrence: FR)
  Receive Date: 20180808
  Receipt Date: 20180808
  Transmission Date: 20181010
  Serious: Yes (Life-Threatening, Hospitalization)
  Sender: FDA-Public Use
  Company Number: FR-PFIZER INC-2018316374

PATIENT
  Age: 70 Year
  Sex: Female
  Weight: 58.5 kg

DRUGS (8)
  1. ACIDE FOLIQUE [Concomitant]
     Active Substance: FOLIC ACID
  2. KALEORID LP [Concomitant]
     Active Substance: POTASSIUM CHLORIDE
  3. ATENOLOL. [Concomitant]
     Active Substance: ATENOLOL
  4. METHOTREXATE SODIUM. [Suspect]
     Active Substance: METHOTREXATE SODIUM
     Indication: RHEUMATIC DISORDER
     Dosage: 20 MG, 1X/DAY
     Route: 048
     Dates: start: 20160920, end: 20161005
  5. ZEFFIX [Concomitant]
     Active Substance: LAMIVUDINE
  6. AXELER [Concomitant]
     Active Substance: AMLODIPINE BESYLATE\OLMESARTAN MEDOXOMIL
  7. TAHOR [Concomitant]
     Active Substance: ATORVASTATIN CALCIUM
  8. HEPSERA [Concomitant]
     Active Substance: ADEFOVIR DIPIVOXIL

REACTIONS (6)
  - Acute kidney injury [Recovered/Resolved]
  - Mucosal inflammation [Recovered/Resolved]
  - Thrombocytopenia [Recovered/Resolved]
  - Agranulocytosis [Recovered/Resolved]
  - Pyrexia [Recovered/Resolved]
  - Dehydration [Recovered/Resolved]

NARRATIVE: CASE EVENT DATE: 20160920
